FAERS Safety Report 11384384 (Version 1)
Quarter: 2015Q3

REPORT INFORMATION
  Report Type: Spontaneous
  Country: US (occurrence: US)
  Receive Date: 20150811
  Receipt Date: 20150811
  Transmission Date: 20151125
  Serious: No
  Sender: FDA-Public Use
  Company Number: US-ELI_LILLY_AND_COMPANY-US201104008259

PATIENT
  Age: 68 Year
  Sex: Male

DRUGS (2)
  1. REMODULIN [Concomitant]
     Active Substance: TREPROSTINIL
     Indication: PULMONARY HYPERTENSION
     Dosage: 67.68 ?G/KG, UNK
     Route: 042
     Dates: start: 20101230
  2. ADCIRCA [Suspect]
     Active Substance: TADALAFIL

REACTIONS (2)
  - Diarrhoea [Unknown]
  - Dizziness [Unknown]
